FAERS Safety Report 9744138 (Version 1)
Quarter: 2013Q4

REPORT INFORMATION
  Report Type: Spontaneous
  Country: DE (occurrence: DE)
  Receive Date: 20131210
  Receipt Date: 20131210
  Transmission Date: 20140711
  Serious: Yes (Other)
  Sender: FDA-Public Use
  Company Number: DE-B.I. PHARMACEUTICALS,INC./RIDGEFIELD-2013-BI-40577DE

PATIENT
  Age: 72 Year
  Sex: Female
  Weight: 78 kg

DRUGS (6)
  1. MICARDIS HCT [Suspect]
     Indication: HYPERTENSION
     Dosage: 1 ANZ
     Dates: start: 2010
  2. METFOR GAMMA 1000 [Concomitant]
  3. NEBUVOLOL [Concomitant]
  4. LERCADIPIN/HCT [Concomitant]
  5. SIMVASTATIN [Concomitant]
  6. ASS [Concomitant]

REACTIONS (2)
  - Vascular graft [Unknown]
  - Rash pruritic [Not Recovered/Not Resolved]
